FAERS Safety Report 6735350-7 (Version None)
Quarter: 2010Q2

REPORT INFORMATION
  Report Type: 
  Country: None (occurrence: None)
  Receive Date: 20100521
  Receipt Date: 20100513
  Transmission Date: 20101027
  Serious: Yes (Hospitalization, Other)
  Sender: FDA-Public Use
  Company Number: US-TYCO HEALTHCARE/MALLINCKRODT-T201000821

PATIENT
  Sex: Male
  Weight: 88.889 kg

DRUGS (13)
  1. OPTIMARK [Suspect]
     Indication: ANGIOGRAM
     Dosage: UNK
     Dates: start: 20030206, end: 20030206
  2. OPTIMARK [Suspect]
     Indication: NUCLEAR MAGNETIC RESONANCE IMAGING
     Dosage: UNK
     Dates: start: 20030329, end: 20030329
  3. OPTIMARK [Suspect]
     Dosage: UNK
     Dates: start: 20030724, end: 20030724
  4. GADOLINIUM [Suspect]
     Dosage: UNK
     Dates: start: 20040401, end: 20040401
  5. GADOLINIUM [Suspect]
     Dosage: UNK
     Dates: start: 20040601, end: 20040601
  6. COZAAR [Concomitant]
  7. PROZAC                             /00724401/ [Concomitant]
  8. VALIUM [Concomitant]
  9. ASPIRIN [Concomitant]
  10. NASALIDE [Concomitant]
  11. ZOCOR [Concomitant]
  12. NORVASC [Concomitant]
  13. VIAGRA [Concomitant]

REACTIONS (18)
  - ACUTE SINUSITIS [None]
  - ATRIAL FIBRILLATION [None]
  - BASAL CELL CARCINOMA [None]
  - CATARACT [None]
  - DEEP VEIN THROMBOSIS [None]
  - ENTROPION [None]
  - FALL [None]
  - FATIGUE [None]
  - LEUKOCYTOSIS [None]
  - NEPHROGENIC SYSTEMIC FIBROSIS [None]
  - OFF LABEL USE [None]
  - PERIRENAL HAEMATOMA [None]
  - PYREXIA [None]
  - SEBORRHOEIC KERATOSIS [None]
  - STAPHYLOCOCCAL OSTEOMYELITIS [None]
  - THROMBOSIS [None]
  - TUBERCULIN TEST POSITIVE [None]
  - VOMITING [None]
